FAERS Safety Report 7321329-3 (Version None)
Quarter: 2011Q1

REPORT INFORMATION
  Report Type: 
  Country: None (occurrence: None)
  Receive Date: 20110216
  Receipt Date: 20110202
  Transmission Date: 20110831
  Serious: Yes (Hospitalization)
  Sender: FDA-Public Use
  Company Number: 2011MA001045

PATIENT
  Age: 39 Year

DRUGS (4)
  1. BROMAZEPAM (BOMRAZEPAM) [Suspect]
  2. FLUOXETINE [Suspect]
  3. TIANEPTINE (TIANEPTINE) [Suspect]
  4. ZOLPIDEM [Suspect]
     Dosage: 4 G

REACTIONS (10)
  - PERIPHERAL ISCHAEMIA [None]
  - SHOCK [None]
  - CATHETER SITE HAEMORRHAGE [None]
  - SEPTIC SHOCK [None]
  - HAEMODIALYSIS [None]
  - BRAIN DEATH [None]
  - TOXICITY TO VARIOUS AGENTS [None]
  - CARDIAC ARREST [None]
  - ARTERIAL THROMBOSIS LIMB [None]
  - RENAL FAILURE ACUTE [None]
